FAERS Safety Report 25015139 (Version 3)
Quarter: 2025Q1

REPORT INFORMATION
  Report Type: Report from Study
  Country: US (occurrence: US)
  Receive Date: 20250226
  Receipt Date: 20250312
  Transmission Date: 20250408
  Serious: Yes (Hospitalization, Other)
  Sender: ABBVIE
  Company Number: US-ABBVIE-6141899

PATIENT
  Age: 54 Year
  Sex: Female

DRUGS (1)
  1. HUMIRA [Suspect]
     Active Substance: ADALIMUMAB
     Indication: Uveitis
     Route: 058
     Dates: start: 20240808

REACTIONS (7)
  - Surgery [Unknown]
  - Infection [Unknown]
  - Thyroid disorder [Recovering/Resolving]
  - Vocal cord disorder [Recovering/Resolving]
  - Goitre [Recovering/Resolving]
  - Endotracheal intubation [Unknown]
  - Nephrolithiasis [Recovering/Resolving]

NARRATIVE: CASE EVENT DATE: 20241201
